FAERS Safety Report 6173052-9 (Version None)
Quarter: 2009Q2

REPORT INFORMATION
  Report Type: 
  Country: None (occurrence: None)
  Receive Date: 20090428
  Receipt Date: 20090415
  Transmission Date: 20091009
  Serious: Yes (Life-Threatening, Hospitalization)
  Sender: FDA-Public Use
  Company Number: PAR_02936_2009

PATIENT
  Age: 48 Year
  Sex: Male

DRUGS (7)
  1. IBUPROFEN [Suspect]
     Indication: BURSA DISORDER
     Dosage: 1600 MG ORAL, 1200 MG ORAL
     Route: 048
     Dates: start: 20081023, end: 20081114
  2. IBUPROFEN [Suspect]
     Indication: BURSA DISORDER
     Dosage: 1600 MG ORAL, 1200 MG ORAL
     Route: 048
     Dates: start: 20080401
  3. ESOMEPRAZOLE [Concomitant]
  4. FALITHROM [Concomitant]
  5. RAMIPRIL [Concomitant]
  6. RANITIDINE HCL [Concomitant]
  7. TRILEPTAL [Concomitant]

REACTIONS (8)
  - ACTIVATED PARTIAL THROMBOPLASTIN TIME PROLONGED [None]
  - ALANINE AMINOTRANSFERASE DECREASED [None]
  - ASPARTATE AMINOTRANSFERASE DECREASED [None]
  - BLOOD PRESSURE SYSTOLIC INCREASED [None]
  - BRONCHOSPASM [None]
  - CHEST PAIN [None]
  - INTERNATIONAL NORMALISED RATIO DECREASED [None]
  - PROTHROMBIN TIME PROLONGED [None]
